FAERS Safety Report 8783578 (Version 1)
Quarter: 2012Q4

REPORT INFORMATION
  Report Type: Report from Study
  Country: US (occurrence: US)
  Receive Date: 20120913
  Receipt Date: 20120913
  Transmission Date: 20130627
  Serious: No
  Sender: FDA-Public Use
  Company Number: US-VERTEX PHARMACEUTICAL INC.-AE-2012-009129

PATIENT
  Age: 47 Year
  Sex: Female
  Weight: 46.82 kg

DRUGS (7)
  1. INCIVEK [Suspect]
     Indication: HEPATITIS C
     Route: 048
  2. PEGASYS [Concomitant]
     Indication: HEPATITIS C
  3. RIBAVIRIN [Concomitant]
     Indication: HEPATITIS C
  4. DEPO-PROVERA [Concomitant]
  5. VITAMIN D HIGH POTENSY [Concomitant]
  6. ALEVE [Concomitant]
  7. VALTREX [Concomitant]

REACTIONS (1)
  - Pruritus generalised [Unknown]
